FAERS Safety Report 9300354 (Version 1)
Quarter: 2013Q2

REPORT INFORMATION
  Report Type: Spontaneous
  Country: US (occurrence: US)
  Receive Date: 20130521
  Receipt Date: 20130521
  Transmission Date: 20140414
  Serious: No
  Sender: FDA-Public Use
  Company Number: US-BAYER-2013-062638

PATIENT
  Age: 90 Year
  Sex: Male
  Weight: 88.44 kg

DRUGS (4)
  1. ALEVE TABLET [Suspect]
     Indication: PAIN
     Dosage: 2 DF, QD
     Route: 048
  2. BAYER ASPIRIN REGIMEN ADULT LOW STRENGTH [Concomitant]
     Dosage: 1 DF, UNK
     Route: 048
  3. SIMVASTATIN [Concomitant]
  4. LEXAPRO [Concomitant]

REACTIONS (2)
  - Drug ineffective [None]
  - Incorrect drug administration duration [None]
